FAERS Safety Report 13860898 (Version 3)
Quarter: 2017Q3

REPORT INFORMATION
  Report Type: Spontaneous
  Country: RU (occurrence: RU)
  Receive Date: 20170811
  Receipt Date: 20170905
  Transmission Date: 20171127
  Serious: Yes (Hospitalization, Other)
  Sender: FDA-Public Use
  Company Number: RU-BAYER-2017-150210

PATIENT
  Age: 51 Year
  Sex: Male

DRUGS (7)
  1. ACETYLSALICYLIC ACID({=100 MG) [Suspect]
     Active Substance: ASPIRIN
     Indication: ISCHAEMIC STROKE
     Dosage: 100 MG, QD
  2. ENALAPRIL [Concomitant]
     Active Substance: ENALAPRIL
     Dosage: 40 MG, QD
  3. ROSUVASTATIN. [Concomitant]
     Active Substance: ROSUVASTATIN
     Dosage: 20 MG, QD
  4. CLOPIDOGREL [Suspect]
     Active Substance: CLOPIDOGREL BISULFATE
     Dosage: UNK
  5. METOPROLOL. [Concomitant]
     Active Substance: METOPROLOL
     Dosage: 75 MG, QD
  6. HYDROCHLOROTHIAZIDE. [Concomitant]
     Active Substance: HYDROCHLOROTHIAZIDE
     Dosage: 12.5 MG, QD
  7. AMLODIPINE [Concomitant]
     Active Substance: AMLODIPINE BESYLATE
     Dosage: 10 MG, QD

REACTIONS (25)
  - Cerebrovascular accident [None]
  - Ischaemic stroke [None]
  - Cerebral arteriosclerosis [None]
  - Headache [None]
  - Asthenia [None]
  - Hyperhomocysteinaemia [None]
  - Labelled drug-drug interaction medication error [None]
  - Aphasia [None]
  - Apraxia [None]
  - Blood pressure fluctuation [None]
  - Malaise [None]
  - Dizziness [None]
  - Cerebral infarction [None]
  - Brain stem infarction [None]
  - General physical health deterioration [None]
  - Hypercholesterolaemia [None]
  - Dyspnoea [None]
  - Hypertension [None]
  - Tinnitus [None]
  - Haemodynamic instability [None]
  - Transient ischaemic attack [None]
  - Ischaemic stroke [None]
  - Cerebral infarction [None]
  - Heart rate increased [None]
  - Chest pain [None]

NARRATIVE: CASE EVENT DATE: 201003
